FAERS Safety Report 16674534 (Version 1)
Quarter: 2019Q3

REPORT INFORMATION
  Report Type: Spontaneous
  Country: US (occurrence: US)
  Receive Date: 20190806
  Receipt Date: 20190806
  Transmission Date: 20191004
  Serious: Yes (Hospitalization)
  Sender: FDA-Public Use
  Company Number: US-TEVA-2019-US-1088550

PATIENT
  Sex: Female

DRUGS (3)
  1. DIAZEPAM TEVA [Suspect]
     Active Substance: DIAZEPAM
     Indication: POST-TRAUMATIC STRESS DISORDER
  2. DIAZEPAM TEVA [Suspect]
     Active Substance: DIAZEPAM
     Indication: PANIC DISORDER
  3. DIAZEPAM TEVA [Suspect]
     Active Substance: DIAZEPAM
     Indication: ANXIETY
     Dosage: 8 MILLIGRAM DAILY; WHITE TEVA AND 3925
     Route: 065
     Dates: start: 2019

REACTIONS (2)
  - Blood pressure increased [Not Recovered/Not Resolved]
  - Therapeutic product effect incomplete [Unknown]

NARRATIVE: CASE EVENT DATE: 2019
